FAERS Safety Report 5711580-8 (Version None)
Quarter: 2008Q2

REPORT INFORMATION
  Report Type: 
  Country: None (occurrence: None)
  Receive Date: 20080421
  Receipt Date: 20080416
  Transmission Date: 20081010
  Serious: Yes (Hospitalization, Other)
  Sender: FDA-Public Use
  Company Number: FR-BRISTOL-MYERS SQUIBB COMPANY-14156186

PATIENT
  Age: 92 Year
  Sex: Male

DRUGS (4)
  1. COUMADIN [Suspect]
     Indication: PULMONARY EMBOLISM
     Route: 048
     Dates: start: 20080206
  2. CALCIPARINE [Suspect]
     Indication: PULMONARY EMBOLISM
     Dosage: 1DOSAGE FORM=12 500 IU/0.5ML.
     Route: 058
     Dates: start: 20080204, end: 20080210
  3. INNOHEP [Suspect]
     Indication: PULMONARY EMBOLISM
     Dates: start: 20080221, end: 20080221
  4. TAHOR [Suspect]
     Dates: start: 20080208

REACTIONS (4)
  - HAEMATOMA [None]
  - OVERDOSE [None]
  - PULMONARY EMBOLISM [None]
  - RENAL FAILURE ACUTE [None]
